FAERS Safety Report 6622257-9 (Version None)
Quarter: 2010Q1

REPORT INFORMATION
  Report Type: 
  Country: None (occurrence: None)
  Receive Date: 20100305
  Receipt Date: 20100223
  Transmission Date: 20100710
  Serious: Yes (Other)
  Sender: FDA-Public Use
  Company Number: 007659

PATIENT
  Sex: Female
  Weight: 60 kg

DRUGS (6)
  1. KEPPRA [Suspect]
     Indication: EPILEPSY
     Dosage: ORAL, ORAL
     Route: 048
     Dates: start: 20080801, end: 20090925
  2. KEPPRA [Suspect]
     Indication: EPILEPSY
     Dosage: ORAL, ORAL
     Route: 048
     Dates: start: 20090925
  3. LAMOTRIGINE (LAMILEPT) [Suspect]
     Indication: EPILEPSY
     Dosage: ORAL
     Route: 048
     Dates: start: 20080801, end: 20090915
  4. TEGRETOL [Suspect]
     Indication: EPILEPSY
     Dosage: ORAL, ONE DOSE OF 200 AND ONE DOSE OF 400 ORAL
     Route: 048
     Dates: start: 20080801, end: 20090930
  5. TEGRETOL [Suspect]
     Indication: EPILEPSY
     Dosage: ORAL, ONE DOSE OF 200 AND ONE DOSE OF 400 ORAL
     Route: 048
     Dates: start: 20090930
  6. ORAL CONTRACEPTIVE NOS [Concomitant]

REACTIONS (3)
  - DRUG EXPOSURE DURING PREGNANCY [None]
  - PREGNANCY [None]
  - PREGNANCY ON ORAL CONTRACEPTIVE [None]
